FAERS Safety Report 25167613 (Version 2)
Quarter: 2025Q2

REPORT INFORMATION
  Report Type: Spontaneous
  Country: US (occurrence: US)
  Receive Date: 20250407
  Receipt Date: 20250604
  Transmission Date: 20250717
  Serious: No
  Sender: NOVEN
  Company Number: US-NOVEN PHARMACEUTICALS, INC.-2025-NOV-US000660

PATIENT
  Sex: Female
  Weight: 64.853 kg

DRUGS (2)
  1. XELSTRYM [Suspect]
     Active Substance: DEXTROAMPHETAMINE
     Indication: Attention deficit hyperactivity disorder
     Dosage: 9 MG/9 HOURS, DAILY
     Route: 062
     Dates: start: 20250309
  2. VYVANSE [Suspect]
     Active Substance: LISDEXAMFETAMINE DIMESYLATE
     Indication: Attention deficit hyperactivity disorder
     Route: 048

REACTIONS (8)
  - Abdominal distension [Recovering/Resolving]
  - Migraine [Recovering/Resolving]
  - Brain fog [Recovering/Resolving]
  - Coeliac disease [Recovering/Resolving]
  - Urticaria [Recovered/Resolved]
  - Fatigue [Recovering/Resolving]
  - Abdominal discomfort [Recovering/Resolving]
  - Product ineffective [Not Recovered/Not Resolved]
